FAERS Safety Report 17911439 (Version 1)
Quarter: 2020Q2

REPORT INFORMATION
  Report Type: Report from Study
  Country: ES (occurrence: ES)
  Receive Date: 20200618
  Receipt Date: 20200618
  Transmission Date: 20200714
  Serious: Yes (Hospitalization)
  Sender: FDA-Public Use
  Company Number: ES-TEVA-2020-ES-1788335

PATIENT
  Age: 72 Year
  Sex: Female

DRUGS (6)
  1. ALDOCUMAR 1 MG COMPRIMIDOS, 40 COMPRIMIDOS [Interacting]
     Active Substance: WARFARIN SODIUM
     Route: 048
     Dates: start: 201504, end: 20170124
  2. BISOPROLOL (2328A) [Concomitant]
     Active Substance: BISOPROLOL
     Dosage: 1.25 MG
     Route: 048
     Dates: start: 201609
  3. PRAXILENE 100 MG, CAPSULAS, 50 C?PSULAS [Concomitant]
     Dosage: 300 MG
     Route: 048
     Dates: start: 20150917, end: 20170124
  4. ORFIDAL 1 MG COMPRIMIDOS, 25 COMPRIMIDOS [Concomitant]
     Active Substance: LORAZEPAM
     Dosage: 1 MG
     Route: 048
     Dates: start: 201605, end: 20170124
  5. SIMVASTATINA (1023A) [Suspect]
     Active Substance: SIMVASTATIN
     Indication: DYSLIPIDAEMIA
     Dosage: 40 MG
     Route: 048
     Dates: start: 2011
  6. VALSARTAN (7423A) [Concomitant]
     Active Substance: VALSARTAN
     Indication: HYPERTENSION
     Dosage: 320 MG
     Route: 048
     Dates: start: 201203

REACTIONS (2)
  - Epistaxis [Recovered/Resolved]
  - Drug interaction [Unknown]

NARRATIVE: CASE EVENT DATE: 20170121
